FAERS Safety Report 14874030 (Version 2)
Quarter: 2018Q2

REPORT INFORMATION
  Report Type: Spontaneous
  Country: DE (occurrence: DE)
  Receive Date: 20180510
  Receipt Date: 20180511
  Transmission Date: 20180711
  Serious: No
  Sender: FDA-Public Use
  Company Number: DE-TEVA-2018-DE-889753

PATIENT
  Age: 22 Year
  Sex: Male

DRUGS (1)
  1. COPAXONE [Suspect]
     Active Substance: GLATIRAMER ACETATE
     Indication: MULTIPLE SCLEROSIS
     Dates: start: 20180430

REACTIONS (1)
  - Joint instability [Recovered/Resolved]

NARRATIVE: CASE EVENT DATE: 20180501
